FAERS Safety Report 4745822-2 (Version None)
Quarter: 2005Q3

REPORT INFORMATION
  Report Type: 
  Country: None (occurrence: None)
  Receive Date: 20050816
  Receipt Date: 20041206
  Transmission Date: 20060218
  Serious: No
  Sender: FDA-Public Use
  Company Number: US-BRISTOL-MYERS SQUIBB COMPANY-12785390

PATIENT
  Sex: Male

DRUGS (2)
  1. MUCOMYST [Suspect]
     Indication: PROPHYLAXIS
     Dosage: TOTAL DOSE ADMINISTERED VIA FOUR INJECTIONS
     Route: 058
     Dates: start: 20041206, end: 20041206
  2. INSULIN [Concomitant]

REACTIONS (2)
  - INCORRECT ROUTE OF DRUG ADMINISTRATION [None]
  - NO ADVERSE EFFECT [None]
